FAERS Safety Report 16084041 (Version 1)
Quarter: 2019Q1

REPORT INFORMATION
  Report Type: Spontaneous
  Country: US (occurrence: US)
  Receive Date: 20190214
  Receipt Date: 20190214
  Transmission Date: 20190418
  Serious: No
  Sender: FDA-Public Use
  Company Number: None

PATIENT
  Age: 65 Year
  Sex: Male
  Weight: 30.39 kg

DRUGS (3)
  1. REPATHA [Suspect]
     Active Substance: EVOLOCUMAB
     Indication: ARTERIOSCLEROSIS
     Dosage: INJECT 140MG  SUBCUTANEOUSL EVERY 2 WEEKS  AS DIRECTED
     Route: 058
     Dates: start: 201901
  2. REPATHA [Suspect]
     Active Substance: EVOLOCUMAB
     Indication: HYPERLIPIDAEMIA
     Dosage: INJECT 140MG  SUBCUTANEOUSL EVERY 2 WEEKS  AS DIRECTED
     Route: 058
     Dates: start: 201901
  3. REPATHA [Suspect]
     Active Substance: EVOLOCUMAB
     Indication: TYPE V HYPERLIPIDAEMIA
     Dosage: INJECT 140MG  SUBCUTANEOUSL EVERY 2 WEEKS  AS DIRECTED
     Route: 058
     Dates: start: 201901

REACTIONS (2)
  - Diarrhoea [None]
  - Pain in extremity [None]
